FAERS Safety Report 8952496 (Version 1)
Quarter: 2012Q4

REPORT INFORMATION
  Report Type: 
  Country: EC (occurrence: EC)
  Receive Date: 20121205
  Receipt Date: 20121205
  Transmission Date: 20130627
  Serious: Yes (Death)
  Sender: FDA-Public Use
  Company Number: PHHY2012EC109702

PATIENT
  Age: 49 None
  Sex: Male

DRUGS (1)
  1. EXFORGE [Suspect]
     Indication: HYPERTENSION
     Dosage: 1 DF, (160 mg vals and 10 mg amlo), QD
     Route: 048
     Dates: start: 20101219, end: 20120824

REACTIONS (2)
  - Pancreatitis acute [Fatal]
  - Abdominal pain upper [Unknown]
